FAERS Safety Report 17951938 (Version 1)
Quarter: 2020Q2

REPORT INFORMATION
  Report Type: Spontaneous
  Country: BR (occurrence: BR)
  Receive Date: 20200626
  Receipt Date: 20200626
  Transmission Date: 20200714
  Serious: Yes (Hospitalization)
  Sender: FDA-Public Use
  Company Number: BR-AMGEN-BRASP2020101788

PATIENT
  Sex: Female

DRUGS (2)
  1. XGEVA [Suspect]
     Active Substance: DENOSUMAB
     Indication: METASTASES TO BONE
     Dosage: 120 MILLIGRAM, QMO
     Route: 058
     Dates: start: 201902
  2. GILOTRIF [Concomitant]
     Active Substance: AFATINIB

REACTIONS (4)
  - Face oedema [Unknown]
  - Pain in jaw [Unknown]
  - Tooth infection [Unknown]
  - Unevaluable event [Unknown]

NARRATIVE: CASE EVENT DATE: 202005
